FAERS Safety Report 5965362-2 (Version None)
Quarter: 2008Q4

REPORT INFORMATION
  Report Type: 
  Country: None (occurrence: None)
  Receive Date: 20081121
  Receipt Date: 20081121
  Transmission Date: 20090506
  Serious: No
  Sender: FDA-Public Use
  Company Number: None

PATIENT
  Age: 77 Year
  Sex: Male
  Weight: 78.02 kg

DRUGS (1)
  1. ROPINIROLE [Suspect]
     Indication: PARKINSONISM
     Dosage: 0.25 MG EVERY DAY PO
     Route: 048
     Dates: start: 20081029, end: 20081118

REACTIONS (3)
  - ABDOMINAL PAIN UPPER [None]
  - NAUSEA [None]
  - VOMITING [None]
